FAERS Safety Report 4281099-2 (Version None)
Quarter: 2004Q1

REPORT INFORMATION
  Report Type: 
  Country: None (occurrence: None)
  Receive Date: 20040112
  Receipt Date: 20030929
  Transmission Date: 20041129
  Serious: Yes (Other)
  Sender: FDA-Public Use
  Company Number: 346682

PATIENT
  Age: 53 Year
  Sex: Male

DRUGS (4)
  1. FUZEON [Suspect]
     Indication: DRUG USE FOR UNKNOWN INDICATION
     Dosage: SUBCUTANEOUS
     Route: 058
     Dates: start: 20030915, end: 20030915
  2. FUZEON [Suspect]
     Indication: DRUG USE FOR UNKNOWN INDICATION
     Dosage: 1 CC 2 PER DAY SUBCUTANEOUS
     Route: 058
     Dates: start: 20030412
  3. REYATAZ (ATAZANAVIR) [Concomitant]
  4. VIREAD [Concomitant]

REACTIONS (3)
  - ADVERSE EVENT [None]
  - MEDICATION ERROR [None]
  - NO ADVERSE DRUG EFFECT [None]
